FAERS Safety Report 20103098 (Version 2)
Quarter: 2022Q1

REPORT INFORMATION
  Report Type: Spontaneous
  Country: US (occurrence: US)
  Receive Date: 20211123
  Receipt Date: 20220225
  Transmission Date: 20220423
  Serious: Yes (Other)
  Sender: FDA-Public Use
  Company Number: US-REDHILL BIOPHARMA-2021RDH00184

PATIENT
  Sex: Female

DRUGS (2)
  1. TALICIA [Suspect]
     Active Substance: AMOXICILLIN\OMEPRAZOLE MAGNESIUM\RIFABUTIN
     Indication: Helicobacter infection
     Dosage: 4 CAPSULES, 3X/DAY (EVERY 8 HOURS)
     Dates: start: 202108, end: 202108
  2. TALICIA [Suspect]
     Active Substance: AMOXICILLIN\OMEPRAZOLE MAGNESIUM\RIFABUTIN
     Dosage: UNK ^ANOTHER COURSE^
     Dates: start: 2021

REACTIONS (9)
  - Hallucination [Unknown]
  - Yellow skin [Recovering/Resolving]
  - Dry mouth [Recovering/Resolving]
  - Confusional state [Recovering/Resolving]
  - Headache [Recovering/Resolving]
  - Insomnia [Recovering/Resolving]
  - Vision blurred [Unknown]
  - Diplopia [Unknown]
  - Drug ineffective [Unknown]

NARRATIVE: CASE EVENT DATE: 20210801
